FAERS Safety Report 9655491 (Version 2)
Quarter: 2013Q4

REPORT INFORMATION
  Report Type: Spontaneous
  Country: US (occurrence: US)
  Receive Date: 20131029
  Receipt Date: 20131029
  Transmission Date: 20140711
  Serious: Yes (Other)
  Sender: FDA-Public Use
  Company Number: US-NAPPMUNDI-USA-2010-0049205

PATIENT
  Age: 52 Year
  Sex: Male

DRUGS (8)
  1. OXYCONTIN (NDA 22-272) [Suspect]
     Indication: PAIN
     Dosage: 80 MG, QID
     Route: 048
     Dates: start: 20100916
  2. OXYCONTIN (NDA 22-272) [Suspect]
     Indication: ACCIDENT
     Dosage: 20 MG, UNK
     Route: 048
  3. OXYCONTIN (NDA 22-272) [Suspect]
     Indication: STAB WOUND
  4. OXYCONTIN (NDA 22-272) [Suspect]
     Indication: GUN SHOT WOUND
  5. OXYCONTIN (NDA 22-272) [Suspect]
     Indication: CYST
  6. ROXICODONE [Concomitant]
     Indication: BREAKTHROUGH PAIN
     Dosage: 30 MG, 5-6 PILLS/ DAY
  7. PHENERGAN                          /00033001/ [Concomitant]
     Indication: NAUSEA
     Dosage: 20 MG, BID
     Route: 048
  8. SOMA [Concomitant]
     Indication: MUSCLE SPASMS
     Dosage: 350 MG, UNK
     Route: 048

REACTIONS (12)
  - Respiratory arrest [Unknown]
  - Unevaluable event [Recovered/Resolved]
  - Foaming at mouth [Unknown]
  - General physical health deterioration [Not Recovered/Not Resolved]
  - Tongue biting [Unknown]
  - Pain [Not Recovered/Not Resolved]
  - Abdominal discomfort [Not Recovered/Not Resolved]
  - Insomnia [Not Recovered/Not Resolved]
  - Product size issue [Not Recovered/Not Resolved]
  - Tremor [Unknown]
  - Vomiting [Unknown]
  - Drug tolerance [Unknown]
